FAERS Safety Report 8119291-9 (Version None)
Quarter: 2012Q1

REPORT INFORMATION
  Report Type: 
  Country: None (occurrence: None)
  Receive Date: 20120207
  Receipt Date: 20120127
  Transmission Date: 20120608
  Serious: Yes (Hospitalization)
  Sender: FDA-Public Use
  Company Number: MX-ELI_LILLY_AND_COMPANY-MX201201005276

PATIENT
  Sex: Male

DRUGS (4)
  1. STRATTERA [Suspect]
     Dosage: 40 MG, UNK
     Dates: start: 20110901
  2. STRATTERA [Suspect]
     Dosage: 60 MG, UNK
  3. STRATTERA [Suspect]
     Dosage: 80 MG, UNK
  4. OXCARBAZEPINE [Concomitant]
     Indication: EPILEPSY
     Dosage: 300 MG, BID
     Dates: start: 20110401

REACTIONS (3)
  - AGGRESSION [None]
  - DECREASED APPETITE [None]
  - TACHYCARDIA [None]
